FAERS Safety Report 6550988-8 (Version None)
Quarter: 2010Q1

REPORT INFORMATION
  Report Type: 
  Country: None (occurrence: None)
  Receive Date: 20100125
  Receipt Date: 20100115
  Transmission Date: 20100710
  Serious: Yes (Life-Threatening, Hospitalization)
  Sender: FDA-Public Use
  Company Number: PT-AMGEN-US353091

PATIENT
  Sex: Male
  Weight: 63 kg

DRUGS (5)
  1. ENBREL [Suspect]
     Indication: RHEUMATOID ARTHRITIS
     Route: 058
     Dates: start: 20080101, end: 20090301
  2. CLOPIDOGREL [Concomitant]
     Route: 048
  3. NAPROXEN [Concomitant]
     Dosage: 1000MG/DAY
     Route: 048
  4. FUROSEMIDE [Concomitant]
     Route: 048
  5. PREDNISOLONE [Concomitant]
     Dosage: 12.5MG/DAY
     Route: 048

REACTIONS (2)
  - CHOROID MELANOMA [None]
  - METASTASIS [None]
